FAERS Safety Report 5932399-9 (Version None)
Quarter: 2008Q4

REPORT INFORMATION
  Report Type: 
  Country: None (occurrence: None)
  Receive Date: 20081028
  Receipt Date: 20081016
  Transmission Date: 20090506
  Serious: Yes (Hospitalization)
  Sender: FDA-Public Use
  Company Number: GB-NOVOPROD-280435

PATIENT
  Sex: Male
  Weight: 111.08 kg

DRUGS (11)
  1. NOVOLOG MIX 70/30 [Suspect]
     Indication: INSULIN-REQUIRING TYPE 2 DIABETES MELLITUS
     Dosage: 76 IU, QD
     Route: 058
     Dates: start: 20080913
  2. NOVOLOG MIX 70/30 [Suspect]
     Dosage: 1500 IU, QD
     Route: 058
     Dates: start: 20081004, end: 20081004
  3. NOVOLOG MIX 70/30 [Suspect]
     Dosage: 76 IU, QD
     Route: 058
  4. NOVORAPID FLEXPEN [Suspect]
     Indication: INSULIN-REQUIRING TYPE 2 DIABETES MELLITUS
     Dosage: 14 IU, QD
     Route: 058
     Dates: start: 20070508
  5. ATENOLOL [Concomitant]
     Indication: HYPERTENSION
     Dosage: 25 MG, QD
     Route: 048
     Dates: start: 20041001
  6. ASPIRIN [Concomitant]
     Indication: PROPHYLAXIS
     Dosage: 75 MG, QD
     Route: 048
     Dates: start: 20041001
  7. GLICLAZIDE [Concomitant]
     Indication: DIABETES MELLITUS
     Dosage: 320 MG, QD
     Route: 048
     Dates: start: 20000101
  8. SIMVASTATIN [Concomitant]
     Dosage: 40 MG, QD
     Route: 048
     Dates: start: 20041001
  9. METFORMIN [Concomitant]
     Indication: DIABETES MELLITUS
     Dosage: 1700 MG, QD
     Route: 048
     Dates: start: 19990101
  10. CLOPIDOGREL [Concomitant]
     Indication: THROMBOSIS PROPHYLAXIS
     Dosage: 75 MG, QD
     Route: 048
     Dates: start: 20050314
  11. PERINDOPRIL [Concomitant]
     Dosage: 20 MG, QD
     Route: 048
     Dates: start: 20060206

REACTIONS (1)
  - INTENTIONAL OVERDOSE [None]
